FAERS Safety Report 6844931-1 (Version None)
Quarter: 2010Q3

REPORT INFORMATION
  Report Type: 
  Country: None (occurrence: None)
  Receive Date: 20100715
  Receipt Date: 20100707
  Transmission Date: 20110219
  Serious: Yes (Other)
  Sender: FDA-Public Use
  Company Number: ES-AMGEN-KDL422897

PATIENT
  Age: 57 Year
  Sex: Male

DRUGS (6)
  1. CINACALCET HYDROCHLORIDE [Suspect]
     Indication: PRODUCT USED FOR UNKNOWN INDICATION
  2. PREDNISONE [Concomitant]
  3. CYCLOSPORINE [Concomitant]
  4. ACETYLSALICYLIC ACID [Concomitant]
  5. ALLOPURINOL [Concomitant]
  6. OMEPRAZOLE [Concomitant]

REACTIONS (4)
  - ABASIA [None]
  - JOINT SWELLING [None]
  - MUSCULAR WEAKNESS [None]
  - MYALGIA [None]
